FAERS Safety Report 23402491 (Version 1)
Quarter: 2024Q1

REPORT INFORMATION
  Report Type: Spontaneous
  Country: US (occurrence: US)
  Receive Date: 20240115
  Receipt Date: 20240115
  Transmission Date: 20240410
  Serious: No
  Sender: FDA-Public Use
  Company Number: US-ABBVIE-5582728

PATIENT
  Sex: Female

DRUGS (1)
  1. SKYRIZI [Suspect]
     Active Substance: RISANKIZUMAB-RZAA
     Indication: Psoriasis
     Route: 058

REACTIONS (5)
  - Hypoaesthesia [Unknown]
  - Neuralgia [Unknown]
  - Abdominal pain [Unknown]
  - Contusion [Unknown]
  - Device issue [Unknown]

NARRATIVE: CASE EVENT DATE: 20231001
